FAERS Safety Report 12745676 (Version 1)
Quarter: 2016Q3

REPORT INFORMATION
  Report Type: Spontaneous
  Country: US (occurrence: US)
  Receive Date: 20160915
  Receipt Date: 20160915
  Transmission Date: 20161109
  Serious: Yes (Other)
  Sender: FDA-Public Use
  Company Number: US-SUNOVION-2016SUN002236

PATIENT
  Sex: Female

DRUGS (2)
  1. LUNESTA [Suspect]
     Active Substance: ESZOPICLONE
     Dosage: 3 MG, UNK
     Route: 048
  2. LUNESTA [Suspect]
     Active Substance: ESZOPICLONE
     Dosage: 6 MG, SINGLE
     Route: 048

REACTIONS (8)
  - Abdominal discomfort [Unknown]
  - Anxiety [Unknown]
  - Crying [Unknown]
  - Insomnia [Unknown]
  - Vomiting [Unknown]
  - Presyncope [Unknown]
  - Extra dose administered [Unknown]
  - Intentional overdose [Unknown]
